FAERS Safety Report 14138021 (Version 1)
Quarter: 2017Q4

REPORT INFORMATION
  Report Type: Spontaneous
  Country: PT (occurrence: PT)
  Receive Date: 20171027
  Receipt Date: 20171027
  Transmission Date: 20180321
  Serious: Yes (Other)
  Sender: FDA-Public Use
  Company Number: PT-PFIZER INC-2017459559

PATIENT
  Age: 63 Year
  Sex: Female
  Weight: 90 kg

DRUGS (12)
  1. PROPOFOL. [Suspect]
     Active Substance: PROPOFOL
     Dosage: 150 MG, UNK
  2. MIANSERINE [Concomitant]
     Active Substance: MIANSERIN HYDROCHLORIDE
  3. ATRACURIUM BESILATE [Suspect]
     Active Substance: ATRACURIUM BESYLATE
     Indication: ANAESTHESIA
  4. PROPOFOL. [Suspect]
     Active Substance: PROPOFOL
     Indication: ANAESTHESIA
     Dosage: 200 MG, UNK
  5. IRBESARTAN. [Concomitant]
     Active Substance: IRBESARTAN
  6. LORAZEPAM. [Suspect]
     Active Substance: LORAZEPAM
  7. FENTANYL. [Suspect]
     Active Substance: FENTANYL
     Indication: ANAESTHESIA
     Dosage: 0.15 MG, UNK
  8. SINVASTATINA [Concomitant]
     Active Substance: SIMVASTATIN
  9. INDAPAMIDE. [Concomitant]
     Active Substance: INDAPAMIDE
  10. VILDAGLIPTIN [Concomitant]
     Active Substance: VILDAGLIPTIN
  11. METFORMIN [Concomitant]
     Active Substance: METFORMIN HYDROCHLORIDE
  12. MIDAZOLAM [Suspect]
     Active Substance: MIDAZOLAM HYDROCHLORIDE
     Indication: ANAESTHESIA
     Dosage: 2.5 MG, UNK

REACTIONS (2)
  - Drug tolerance [Unknown]
  - Unwanted awareness during anaesthesia [Recovered/Resolved]
